FAERS Safety Report 14419244 (Version 1)
Quarter: 2018Q1

REPORT INFORMATION
  Report Type: Spontaneous
  Country: US (occurrence: US)
  Receive Date: 20180120
  Receipt Date: 20180120
  Transmission Date: 20180509
  Serious: Yes (Other)
  Sender: FDA-Public Use
  Company Number: None

PATIENT
  Age: 39 Year
  Sex: Female
  Weight: 58.5 kg

DRUGS (3)
  1. FLUOXITINE 40MG CAPSULE [Suspect]
     Active Substance: FLUOXETINE HYDROCHLORIDE
     Indication: MAJOR DEPRESSION
     Dosage: ?          QUANTITY:30 CAPSULE(S);?
     Route: 048
     Dates: start: 20180108, end: 20180120
  2. CLONAZEPAM. [Concomitant]
     Active Substance: CLONAZEPAM
  3. FLUOXITINE 20MG [Suspect]
     Active Substance: FLUOXETINE HYDROCHLORIDE
     Indication: MAJOR DEPRESSION
     Dosage: ?          QUANTITY:30 CAPSULE(S);?
     Route: 048
     Dates: start: 20180108, end: 20180120

REACTIONS (3)
  - Insurance issue [None]
  - Depressive symptom [None]
  - Therapy change [None]

NARRATIVE: CASE EVENT DATE: 20180115
